FAERS Safety Report 11198691 (Version 3)
Quarter: 2015Q3

REPORT INFORMATION
  Report Type: Spontaneous
  Country: US (occurrence: None)
  Receive Date: 20150616
  Receipt Date: 20150702
  Transmission Date: 20151125
  Serious: Yes (Other)
  Sender: FDA-Public Use
  Company Number: A1079674A

PATIENT
  Age: 58 Year
  Sex: Male

DRUGS (6)
  1. LAMIVUDINE. [Suspect]
     Active Substance: LAMIVUDINE
     Indication: HIV INFECTION
  2. EPIVIR [Suspect]
     Active Substance: LAMIVUDINE
     Indication: HIV INFECTION
     Dates: start: 1995
  3. FOLIC ACID. [Concomitant]
     Active Substance: FOLIC ACID
  4. VITAMIN C [Concomitant]
     Active Substance: ASCORBIC ACID
  5. TIVICAY [Suspect]
     Active Substance: DOLUTEGRAVIR SODIUM
     Indication: HIV INFECTION
     Route: 048
     Dates: start: 201401, end: 20140612
  6. PRAVASTATIN [Concomitant]
     Active Substance: PRAVASTATIN\PRAVASTATIN SODIUM

REACTIONS (15)
  - Lipodystrophy acquired [None]
  - Disturbance in attention [None]
  - Nail discolouration [None]
  - Benign prostatic hyperplasia [None]
  - Low density lipoprotein increased [None]
  - Inflammation [None]
  - Drug ineffective [None]
  - Blood creatine phosphokinase increased [None]
  - Suicidal ideation [None]
  - Anxiety [None]
  - Depressed mood [None]
  - Headache [None]
  - Contusion [None]
  - Insomnia [None]
  - Weight increased [None]
